FAERS Safety Report 4804185-4 (Version None)
Quarter: 2005Q4

REPORT INFORMATION
  Report Type: 
  Country: None (occurrence: None)
  Receive Date: 20051020
  Receipt Date: 20051013
  Transmission Date: 20060501
  Serious: Yes (Hospitalization)
  Sender: FDA-Public Use
  Company Number: 200519131GDDC

PATIENT
  Age: 58 Year
  Sex: Male

DRUGS (12)
  1. FLAGYL [Suspect]
     Dosage: DOSE: 500 MG
     Route: 048
     Dates: start: 20050826, end: 20050831
  2. MAXIPIME [Suspect]
     Route: 042
     Dates: start: 20050729, end: 20050817
  3. TIENAM [Suspect]
     Dates: start: 20050818, end: 20050831
  4. BACTRIM DS [Suspect]
     Dosage: DOSE: 800MG/160MG THREE TIMES A WEEK
     Route: 048
     Dates: start: 20050714, end: 20050729
  5. BACTRIM [Suspect]
     Dosage: DOSE: 400MG/80MG THREE TIMES A WEEK
     Route: 042
     Dates: start: 20050730, end: 20050831
  6. FUNGIZONE [Suspect]
     Route: 042
     Dates: start: 20050809, end: 20050815
  7. CANCIDAS [Suspect]
     Dates: start: 20050811, end: 20050826
  8. ACYCLOVIR [Suspect]
     Dates: start: 20050819, end: 20050822
  9. ENDOXAN [Suspect]
     Dates: start: 20050801, end: 20050802
  10. ASPARAGINASE [Suspect]
     Dosage: DOSE: 11500 IU 4 TOTAL
     Route: 042
     Dates: start: 20050802, end: 20050808
  11. ONCOVIN [Concomitant]
     Route: 042
     Dates: start: 20050801, end: 20050802
  12. CERUBIDINE [Concomitant]
     Route: 042
     Dates: start: 20050801, end: 20050802

REACTIONS (6)
  - BILE DUCT STENOSIS [None]
  - HEPATIC NECROSIS [None]
  - HEPATIC STEATOSIS [None]
  - HEPATITIS CHOLESTATIC [None]
  - PANCYTOPENIA [None]
  - SYSTEMIC CANDIDA [None]
